FAERS Safety Report 4737273-1 (Version None)
Quarter: 2005Q3

REPORT INFORMATION
  Report Type: 
  Country: None (occurrence: None)
  Receive Date: 20050728
  Receipt Date: 20050523
  Transmission Date: 20060218
  Serious: No
  Sender: FDA-Public Use
  Company Number: 200512562US

PATIENT
  Age: 58 Year
  Sex: Male
  Weight: 91.3 kg

DRUGS (7)
  1. KETEK [Suspect]
     Indication: BRONCHITIS
     Dosage: 800 MG/DAY
     Dates: start: 20050325, end: 20050327
  2. METFORMIN [Concomitant]
  3. VERAPAMIL [Concomitant]
  4. LANTUS [Concomitant]
  5. HUMALOG [Concomitant]
  6. LOPID [Concomitant]
  7. OXCARBAZEPINE (TRILEPTAL ^CIBA-GEIGY^) [Concomitant]

REACTIONS (2)
  - SOMNOLENCE [None]
  - TREMOR [None]
